FAERS Safety Report 19252979 (Version 2)
Quarter: 2023Q2

REPORT INFORMATION
  Report Type: Spontaneous
  Country: US (occurrence: US)
  Receive Date: 20210513
  Receipt Date: 20230601
  Transmission Date: 20230721
  Serious: No
  Sender: FDA-Public Use
  Company Number: US-UCBSA-2020014745

PATIENT
  Sex: Female

DRUGS (7)
  1. CIMZIA [Suspect]
     Active Substance: CERTOLIZUMAB PEGOL
     Indication: Psoriatic arthropathy
     Dosage: 400 MILLIGRAM, EV 4 WEEKS
     Route: 058
     Dates: start: 201906
  2. CIMZIA [Suspect]
     Active Substance: CERTOLIZUMAB PEGOL
     Indication: Osteoarthritis
  3. DICLOFENAC [Concomitant]
     Active Substance: DICLOFENAC
  4. VITAMIN D NOS [Concomitant]
     Active Substance: VITAMIN D NOS
  5. CLOBETASOL [Concomitant]
     Active Substance: CLOBETASOL
  6. ALBUTEROL [Concomitant]
     Active Substance: ALBUTEROL
  7. FLUOCINOLONE [Concomitant]
     Active Substance: FLUOCINOLONE

REACTIONS (1)
  - Arthralgia [Not Recovered/Not Resolved]
